FAERS Safety Report 16836913 (Version 1)
Quarter: 2019Q3

REPORT INFORMATION
  Report Type: Report from Study
  Country: None (occurrence: NL)
  Receive Date: 20190923
  Receipt Date: 20190923
  Transmission Date: 20191005
  Serious: Yes (Hospitalization, Other)
  Sender: FDA-Public Use
  Company Number: NL-ABBVIE-19K-114-2926518-00

PATIENT
  Sex: Female

DRUGS (1)
  1. DUODOPA [Suspect]
     Active Substance: CARBIDOPA\LEVODOPA
     Indication: PARKINSON^S DISEASE
     Route: 050
     Dates: start: 20130422

REACTIONS (4)
  - Colon cancer [Not Recovered/Not Resolved]
  - Incorrect dose administered [Unknown]
  - Wrong technique in product usage process [Unknown]
  - Abscess intestinal [Not Recovered/Not Resolved]

NARRATIVE: CASE EVENT DATE: 2019
